FAERS Safety Report 5214939-0 (Version None)
Quarter: 2007Q1

REPORT INFORMATION
  Report Type: 
  Country: None (occurrence: None)
  Receive Date: 20070119
  Receipt Date: 20070119
  Transmission Date: 20070707
  Serious: Yes (Hospitalization)
  Sender: FDA-Public Use
  Company Number: None

PATIENT
  Sex: Female
  Weight: 56 kg

DRUGS (4)
  1. DOXIL [Suspect]
     Indication: BREAST CANCER METASTATIC
     Dosage: 45MG/M2 IV Q 4 WEEKS
     Dates: start: 20061229
  2. LAPATINIB [Suspect]
     Indication: BREAST CANCER METASTATIC
     Dosage: 1500MG P.O. QD
     Route: 048
     Dates: start: 20061229, end: 20070105
  3. LEXAPRO [Concomitant]
  4. MULTI-VITAMIN [Concomitant]

REACTIONS (11)
  - ANOREXIA [None]
  - BLOOD CALCIUM INCREASED [None]
  - DIARRHOEA [None]
  - DYSPHONIA [None]
  - FATIGUE [None]
  - GINGIVAL BLEEDING [None]
  - LYMPHADENOPATHY [None]
  - MALIGNANT NEOPLASM PROGRESSION [None]
  - METASTASES TO LIVER [None]
  - PERFORMANCE STATUS DECREASED [None]
  - RHINORRHOEA [None]
